FAERS Safety Report 17658138 (Version 9)
Quarter: 2020Q2

REPORT INFORMATION
  Report Type: Report from Study
  Country: CO (occurrence: CO)
  Receive Date: 20200411
  Receipt Date: 20200624
  Transmission Date: 20200713
  Serious: Yes (Hospitalization, Other)
  Sender: FDA-Public Use
  Company Number: CO-AMGEN-COLSL2020047377

PATIENT
  Age: 55 Year
  Sex: Male

DRUGS (2)
  1. VECTIBIX [Suspect]
     Active Substance: PANITUMUMAB
     Indication: COLORECTAL CANCER METASTATIC
     Dosage: 288 MILLIGRAM, Q2WK
     Route: 042
     Dates: start: 20190612, end: 20191106
  2. VECTIBIX [Suspect]
     Active Substance: PANITUMUMAB
     Dosage: 288 MILLIGRAM, Q2WK
     Route: 042
     Dates: start: 20200324, end: 20200324

REACTIONS (9)
  - Haematuria [Recovering/Resolving]
  - Oedema peripheral [Recovering/Resolving]
  - Anaemia [Recovering/Resolving]
  - Abdominal pain [Recovering/Resolving]
  - Gastrointestinal stoma complication [Recovering/Resolving]
  - Central venous catheterisation [Recovering/Resolving]
  - Urinary tract infection [Recovering/Resolving]
  - Post procedural drainage [Recovering/Resolving]
  - Weight decreased [Recovering/Resolving]

NARRATIVE: CASE EVENT DATE: 2020
